FAERS Safety Report 14955554 (Version 3)
Quarter: 2019Q3

REPORT INFORMATION
  Report Type: Spontaneous
  Country: US (occurrence: US)
  Receive Date: 20180531
  Receipt Date: 20190816
  Transmission Date: 20191004
  Serious: No
  Sender: FDA-Public Use
  Company Number: US-SA-2018SA144299

PATIENT
  Sex: Female

DRUGS (2)
  1. AUBAGIO [Suspect]
     Active Substance: TERIFLUNOMIDE
     Indication: MULTIPLE SCLEROSIS
     Dosage: 14 MG, QD
     Route: 048
     Dates: start: 20180614
  2. AMPYRA [Concomitant]
     Active Substance: DALFAMPRIDINE
     Dosage: 2 PILLS IN THE AM BY MISTAKE

REACTIONS (3)
  - Fatigue [Unknown]
  - Product administration error [Unknown]
  - Gait inability [Unknown]
